FAERS Safety Report 24592817 (Version 1)
Quarter: 2024Q4

REPORT INFORMATION
  Report Type: Report from Study
  Country: FR (occurrence: FR)
  Receive Date: 20241108
  Receipt Date: 20241108
  Transmission Date: 20250114
  Serious: Yes (Other)
  Sender: PFIZER
  Company Number: FR-PFIZER INC-2020263246

PATIENT
  Weight: 11.3 kg

DRUGS (11)
  1. CYTARABINE [Suspect]
     Active Substance: CYTARABINE
     Dosage: 37 MG, DAILY ( INTRAVENOUS INFUSION)
     Route: 042
     Dates: start: 20200606, end: 20200611
  2. GEMTUZUMAB OZOGAMICIN [Suspect]
     Active Substance: GEMTUZUMAB OZOGAMICIN
     Indication: Acute myeloid leukaemia
     Dosage: 1.1 MG (OTHER), INTRAVENOUS INFUSION
     Route: 042
     Dates: start: 20200609, end: 20200615
  3. MITOXANTRONE [Suspect]
     Active Substance: MITOXANTRONE HYDROCHLORIDE
     Indication: Acute myeloid leukaemia
     Dosage: 4.6 MG/M2, DAILY
     Route: 042
     Dates: start: 20200606, end: 20200609
  4. AMBISOME [Suspect]
     Active Substance: AMPHOTERICIN B
     Indication: Antifungal prophylaxis
     Dosage: 35 MG, DAILY
     Route: 042
     Dates: start: 20200622, end: 20200713
  5. TAZOBACTAM [Suspect]
     Active Substance: TAZOBACTAM
     Indication: Antibiotic therapy
     Dosage: 1.2 G, TID
     Route: 042
     Dates: start: 20200615, end: 20200630
  6. ONDANSETRON [Concomitant]
     Active Substance: ONDANSETRON
     Indication: Prophylaxis of nausea and vomiting
     Dosage: 2.5 MG, 2X/DAY
     Dates: start: 20200606, end: 20200620
  7. AMIKACIN [Concomitant]
     Active Substance: AMIKACIN
     Indication: Antibiotic therapy
     Dosage: 175 MG, Q.D
     Dates: start: 20200615, end: 20200617
  8. VANCOMYCIN [Concomitant]
     Active Substance: VANCOMYCIN
     Indication: Antibiotic therapy
     Dosage: 150 MG, 3X/DAY
     Dates: start: 20200615, end: 20200617
  9. VANCOMYCIN [Concomitant]
     Active Substance: VANCOMYCIN
     Dosage: 600 MG, 1X/DAY
     Dates: start: 20200618, end: 20200623
  10. GENTAMICIN [Concomitant]
     Active Substance: GENTAMICIN
     Indication: Antibiotic therapy
     Dosage: 20 MG, TID
     Dates: start: 20200606
  11. FUNGIZONE [Concomitant]
     Active Substance: AMPHOTERICIN B
     Indication: Antifungal prophylaxis
     Dosage: 180 MG, TID
     Dates: start: 20200606, end: 20200623

REACTIONS (2)
  - Erythema multiforme [Recovered/Resolved]
  - Febrile neutropenia [Recovered/Resolved]

NARRATIVE: CASE EVENT DATE: 20200624
